FAERS Safety Report 21369932 (Version 1)
Quarter: 2022Q3

REPORT INFORMATION
  Report Type: Spontaneous
  Country: US (occurrence: None)
  Receive Date: 20220922
  Receipt Date: 20220922
  Transmission Date: 20221027
  Serious: Yes (Other)
  Sender: FDA-Public Use
  Company Number: None

PATIENT

DRUGS (1)
  1. SAPHRIS [Suspect]
     Active Substance: ASENAPINE MALEATE
     Indication: Bipolar disorder
     Dosage: FREQUENCY : TWICE A DAY;?
     Route: 048

REACTIONS (3)
  - Stomatitis [None]
  - Diarrhoea [None]
  - Abdominal discomfort [None]
